FAERS Safety Report 10619105 (Version 1)
Quarter: 2014Q4

REPORT INFORMATION
  Report Type: Spontaneous
  Country: US (occurrence: US)
  Receive Date: 20141202
  Receipt Date: 20141202
  Transmission Date: 20150529
  Serious: Yes (Life-Threatening)
  Sender: FDA-Public Use
  Company Number: CHPA2014US015823

PATIENT
  Age: 45 Year
  Sex: Female

DRUGS (4)
  1. EXCEDRIN MIGRAINE [Suspect]
     Active Substance: ACETAMINOPHEN\ASPIRIN\CAFFEINE
     Indication: MIGRAINE
     Dosage: 2 DF, TID
     Route: 048
     Dates: start: 1994
  2. LOTRIMIN [Suspect]
     Active Substance: CLOTRIMAZOLE
     Indication: PRODUCT USED FOR UNKNOWN INDICATION
     Route: 065
  3. EXCEDRIN MIGRAINE [Suspect]
     Active Substance: ACETAMINOPHEN\ASPIRIN\CAFFEINE
     Indication: MIGRAINE
     Dosage: 2 DF, TID
     Route: 065
  4. EXCEDRIN MIGRAINE [Suspect]
     Active Substance: ACETAMINOPHEN\ASPIRIN\CAFFEINE
     Indication: HEADACHE

REACTIONS (5)
  - Incorrect dose administered [Unknown]
  - Feeling abnormal [Recovered/Resolved]
  - Therapeutic response unexpected [Unknown]
  - Chest discomfort [Unknown]
  - Fall [Unknown]

NARRATIVE: CASE EVENT DATE: 1994
